FAERS Safety Report 18825545 (Version 3)
Quarter: 2021Q1

REPORT INFORMATION
  Report Type: Spontaneous
  Country: GB (occurrence: GB)
  Receive Date: 20210202
  Receipt Date: 20210223
  Transmission Date: 20210419
  Serious: Yes (Hospitalization, Other)
  Sender: FDA-Public Use
  Company Number: GB-PFIZER INC-2021061490

PATIENT
  Age: 59 Year
  Sex: Female

DRUGS (3)
  1. CLOZARIL [Suspect]
     Active Substance: CLOZAPINE
     Indication: SCHIZOPHRENIA
     Dosage: 75MG IN THE MORNING AND 100MG AT NIGHT
     Route: 048
     Dates: start: 20090927
  2. CISPLATIN. [Suspect]
     Active Substance: CISPLATIN
     Indication: BLADDER CANCER
     Dosage: UNK, CYCLIC
     Dates: start: 20201229
  3. GEMCITABINE HYDROCHLORIDE. [Suspect]
     Active Substance: GEMCITABINE HYDROCHLORIDE
     Indication: BLADDER CANCER
     Dosage: UNK, CYCLIC
     Dates: start: 20201229

REACTIONS (3)
  - Eosinophilia [Not Recovered/Not Resolved]
  - Contraindicated product administered [Unknown]
  - Platelet count increased [Unknown]

NARRATIVE: CASE EVENT DATE: 20200811
